FAERS Safety Report 8517051-8 (Version None)
Quarter: 2012Q2

REPORT INFORMATION
  Report Type: 
  Country: None (occurrence: None)
  Receive Date: 20120406
  Receipt Date: 20100917
  Transmission Date: 20120825
  Serious: Yes (Hospitalization)
  Sender: FDA-Public Use
  Company Number: PHHY2010US62132

PATIENT
  Age: 83 Year
  Sex: Female

DRUGS (13)
  1. LASIX [Concomitant]
  2. DETROL [Concomitant]
  3. LEVOTHYROXINE SODIUM [Concomitant]
  4. TASIGNA [Suspect]
     Dosage: 200 MG, QID
  5. PRILOSEC [Concomitant]
  6. MULTIVITAMINS (ASCORBIC ACID, ERGOCALCIFEROL, FOLIC ACID, NICOTINAMIDE [Concomitant]
  7. CELEBREX [Concomitant]
  8. METOPROLOL TARTRATE [Concomitant]
  9. POTASSIUM (POTASSIUM) [Concomitant]
  10. ALLOPURINOL [Concomitant]
  11. IRON (IRON) [Concomitant]
  12. CITALOPRAM HYDROBROMIDE [Concomitant]
  13. FOLIC ACID [Concomitant]

REACTIONS (1)
  - PANCYTOPENIA [None]
